FAERS Safety Report 4813842-5 (Version None)
Quarter: 2005Q4

REPORT INFORMATION
  Report Type: 
  Country: None (occurrence: None)
  Receive Date: 20051028
  Receipt Date: 20050328
  Transmission Date: 20060501
  Serious: No
  Sender: FDA-Public Use
  Company Number: US-GLAXOSMITHKLINE-A0551477A

PATIENT
  Age: 48 Year
  Sex: Male

DRUGS (5)
  1. ADVAIR DISKUS 100/50 [Suspect]
     Indication: CHRONIC OBSTRUCTIVE PULMONARY DISEASE
     Dosage: 1PUFF TWICE PER DAY
     Route: 055
     Dates: start: 20040101
  2. OXYCONTIN [Concomitant]
  3. VALIUM [Concomitant]
  4. PREVACID [Concomitant]
  5. ALBUTEROL [Concomitant]

REACTIONS (1)
  - STOMACH DISCOMFORT [None]
